FAERS Safety Report 18832232 (Version 2)
Quarter: 2021Q1

REPORT INFORMATION
  Report Type: Spontaneous
  Country: US (occurrence: US)
  Receive Date: 20210203
  Receipt Date: 20210205
  Transmission Date: 20210419
  Serious: Yes (Other)
  Sender: FDA-Public Use
  Company Number: US-SUNOVION-2021SUN000247

PATIENT
  Age: 32 Year
  Sex: Female

DRUGS (2)
  1. LATUDA [Suspect]
     Active Substance: LURASIDONE HYDROCHLORIDE
     Dosage: 20 MG, QD
     Route: 048
  2. LATUDA [Suspect]
     Active Substance: LURASIDONE HYDROCHLORIDE
     Dosage: 40 MG, QD
     Route: 048
     Dates: start: 20210126

REACTIONS (7)
  - Hyperhidrosis [Unknown]
  - Confusional state [Unknown]
  - Neck pain [Unknown]
  - Temperature regulation disorder [Unknown]
  - Aggression [Unknown]
  - Neuroleptic malignant syndrome [Unknown]
  - Psychotic disorder [Unknown]
